FAERS Safety Report 6076860-8 (Version None)
Quarter: 2009Q1

REPORT INFORMATION
  Report Type: 
  Country: None (occurrence: None)
  Receive Date: 20090213
  Receipt Date: 20090203
  Transmission Date: 20090719
  Serious: Yes (Other)
  Sender: FDA-Public Use
  Company Number: DE-AMGEN-UK331587

PATIENT

DRUGS (5)
  1. NEULASTA [Suspect]
     Indication: CHEMOTHERAPY
     Route: 065
  2. GEMCITABINE [Concomitant]
     Route: 065
     Dates: start: 20090119
  3. DOXORUBICIN HYDROCHLORIDE [Concomitant]
     Route: 065
     Dates: start: 20090119
  4. VINBLASTINE [Concomitant]
     Route: 065
     Dates: start: 20090119
  5. PREDNISONE [Concomitant]
     Route: 065
     Dates: start: 20090119

REACTIONS (1)
  - DYSPNOEA [None]
